FAERS Safety Report 8959148 (Version 1)
Quarter: 2012Q4

REPORT INFORMATION
  Report Type: 
  Country: US (occurrence: US)
  Receive Date: 20121211
  Receipt Date: 20121211
  Transmission Date: 20130627
  Serious: No
  Sender: FDA-Public Use
  Company Number: US-VERTEX PHARMACEUTICAL INC.-2012-020358

PATIENT
  Sex: Female
  Weight: 103 kg

DRUGS (8)
  1. INCIVEK [Suspect]
     Indication: HEPATITIS C
     Dosage: 750 mg, UNK
     Route: 048
     Dates: start: 20120715
  2. RIBAVIRIN [Concomitant]
     Indication: HEPATITIS C
     Dosage: UNK
     Route: 048
     Dates: start: 20120603, end: 20120805
  3. RIBAVIRIN [Concomitant]
     Dosage: UNK
     Route: 048
     Dates: start: 20120805
  4. PEGASYS [Concomitant]
     Indication: HEPATITIS C
     Dosage: 180 ?g, UNK
     Route: 058
     Dates: start: 20120603
  5. PROZAC [Concomitant]
     Indication: DEPRESSION
     Dosage: 30 mg, qd
     Route: 048
     Dates: start: 20120603
  6. WELLBUTRIN [Concomitant]
     Indication: DEPRESSION
     Dosage: 20 mg, qd
     Route: 048
  7. TYLENOL PM [Concomitant]
     Indication: ANALGESIC THERAPY
     Dosage: 2 DF, qd
     Route: 048
  8. SYNTHROID [Concomitant]
     Indication: THYROID DISORDER
     Dosage: 50 ?g, UNK
     Route: 048

REACTIONS (3)
  - Rash papular [Not Recovered/Not Resolved]
  - Haemoglobin decreased [Not Recovered/Not Resolved]
  - Haemorrhoids [Not Recovered/Not Resolved]
